FAERS Safety Report 9106832 (Version 2)
Quarter: 2013Q3

REPORT INFORMATION
  Report Type: Report from Study
  Country: DE (occurrence: DE)
  Receive Date: 20130221
  Receipt Date: 20130717
  Transmission Date: 20140515
  Serious: Yes (Hospitalization)
  Sender: FDA-Public Use
  Company Number: DE-SANOFI-AVENTIS-2013SA016722

PATIENT
  Age: 69 Year
  Sex: Female
  Weight: 96 kg

DRUGS (3)
  1. TAXOTERE [Suspect]
     Indication: BREAST CANCER
     Route: 041
     Dates: start: 20060831, end: 20060831
  2. GEMCITABINE [Suspect]
     Indication: BREAST CANCER
     Route: 041
     Dates: start: 20060831, end: 20060831
  3. DEXAMETHASONE [Concomitant]
     Indication: PREMEDICATION
     Route: 042
     Dates: start: 20060831, end: 20060831

REACTIONS (3)
  - Diabetes mellitus [Recovered/Resolved with Sequelae]
  - Device related infection [Recovered/Resolved with Sequelae]
  - Pneumonia [Recovered/Resolved with Sequelae]
